FAERS Safety Report 24073345 (Version 5)
Quarter: 2024Q4

REPORT INFORMATION
  Report Type: Spontaneous
  Country: GR (occurrence: GR)
  Receive Date: 20240710
  Receipt Date: 20241031
  Transmission Date: 20250114
  Serious: No
  Sender: PFIZER
  Company Number: GR-PFIZER INC-202400206086

PATIENT
  Age: 10 Year
  Sex: Female
  Weight: 30 kg

DRUGS (2)
  1. GENOTROPIN [Suspect]
     Active Substance: SOMATROPIN
     Indication: Dwarfism
     Dosage: 1.4MG X 2 DAYS, 1.3MG X 4DAYS AND 1 DAY OFF
     Route: 058
     Dates: start: 202404
  2. TRIPTORELIN [Concomitant]
     Active Substance: TRIPTORELIN
     Indication: Delayed puberty
     Dosage: UNK, MONTHLY
     Dates: start: 20240531

REACTIONS (3)
  - Device mechanical issue [Not Recovered/Not Resolved]
  - Poor quality device used [Unknown]
  - Drug dose omission by device [Recovered/Resolved]

NARRATIVE: CASE EVENT DATE: 20240101
